FAERS Safety Report 14986182 (Version 2)
Quarter: 2018Q2

REPORT INFORMATION
  Report Type: Spontaneous
  Country: US (occurrence: US)
  Receive Date: 20180607
  Receipt Date: 20180611
  Transmission Date: 20180711
  Serious: No
  Sender: FDA-Public Use
  Company Number: US-PFIZER INC-2018230833

PATIENT
  Sex: Female

DRUGS (2)
  1. LYRICA [Suspect]
     Active Substance: PREGABALIN
     Dosage: 50 MG, UNK
  2. LYRICA [Suspect]
     Active Substance: PREGABALIN
     Dosage: 100 MG, UNK
     Dates: end: 20180601

REACTIONS (6)
  - Malaise [Unknown]
  - Headache [Unknown]
  - Drug ineffective [Unknown]
  - Nausea [Unknown]
  - Withdrawal syndrome [Unknown]
  - Diarrhoea [Unknown]
